FAERS Safety Report 24189932 (Version 2)
Quarter: 2024Q3

REPORT INFORMATION
  Report Type: Report from Study
  Country: BR (occurrence: BR)
  Receive Date: 20240808
  Receipt Date: 20240814
  Transmission Date: 20241017
  Serious: Yes (Hospitalization)
  Sender: JOHNSON AND JOHNSON
  Company Number: BR-JNJFOC-20240813097

PATIENT
  Age: 76 Year
  Sex: Female
  Weight: 73 kg

DRUGS (1)
  1. INFLIXIMAB [Suspect]
     Active Substance: INFLIXIMAB
     Indication: Rheumatoid arthritis
     Route: 041
     Dates: start: 20220225

REACTIONS (6)
  - Adverse event [Unknown]
  - Visual impairment [Unknown]
  - Joint dislocation [Unknown]
  - Joint lock [Unknown]
  - Herpes zoster [Unknown]
  - Product dose omission issue [Unknown]
